FAERS Safety Report 23241954 (Version 1)
Quarter: 2023Q4

REPORT INFORMATION
  Report Type: Spontaneous
  Country: US (occurrence: None)
  Receive Date: 20231129
  Receipt Date: 20231129
  Transmission Date: 20240110
  Serious: Yes (Other)
  Sender: FDA-Public Use
  Company Number: None

PATIENT
  Age: 37 Year
  Sex: Female
  Weight: 85.5 kg

DRUGS (3)
  1. CLARITIN [Suspect]
     Active Substance: LORATADINE
     Indication: Multiple allergies
     Dosage: OTHER QUANTITY : 1 TABLET(S);?FREQUENCY : DAILY;?
     Route: 048
     Dates: start: 20231125, end: 20231125
  2. Flonase Decongestant [Concomitant]
  3. SUDAFED [Concomitant]
     Active Substance: PSEUDOEPHEDRINE HYDROCHLORIDE

REACTIONS (10)
  - Agitation [None]
  - Irritability [None]
  - Suicidal ideation [None]
  - Paranoia [None]
  - Anger [None]
  - Depression [None]
  - Incontinence [None]
  - Migraine [None]
  - Confusional state [None]
  - Amnesia [None]

NARRATIVE: CASE EVENT DATE: 20231125
